FAERS Safety Report 15635654 (Version 1)
Quarter: 2018Q4

REPORT INFORMATION
  Report Type: Spontaneous
  Country: FR (occurrence: FR)
  Receive Date: 20181120
  Receipt Date: 20181120
  Transmission Date: 20190205
  Serious: Yes (Other)
  Sender: FDA-Public Use
  Company Number: FR-ALVOGEN-2018-ALVOGEN-097779

PATIENT
  Age: 59 Year
  Sex: Male

DRUGS (4)
  1. TENORMIN [Suspect]
     Active Substance: ATENOLOL
     Indication: SUICIDE ATTEMPT
     Route: 048
     Dates: start: 20170114, end: 20170114
  2. ACETYLSALICYLATE LYSINE [Suspect]
     Active Substance: ASPIRIN DL-LYSINE
     Indication: SUICIDE ATTEMPT
     Dosage: ONCE/SINGLE ADMINISTRATION
     Route: 048
     Dates: start: 20170114, end: 20170114
  3. PERINDOPRIL ERBUMINE. [Suspect]
     Active Substance: PERINDOPRIL ERBUMINE
     Indication: SUICIDE ATTEMPT
     Dosage: ONCE/SINGLE ADMINISTRATION
     Route: 048
     Dates: start: 20170114, end: 20170114
  4. ATORVASTATIN CALCIUM. [Suspect]
     Active Substance: ATORVASTATIN CALCIUM
     Indication: SUICIDE ATTEMPT
     Dosage: ONCE/SINGLE ADMINISTRATION
     Route: 048
     Dates: start: 20170114, end: 20170114

REACTIONS (3)
  - Hypotension [Recovered/Resolved]
  - Bradycardia [Recovered/Resolved]
  - Toxicity to various agents [Recovered/Resolved]

NARRATIVE: CASE EVENT DATE: 20170114
